FAERS Safety Report 13028410 (Version 1)
Quarter: 2016Q4

REPORT INFORMATION
  Report Type: Spontaneous
  Country: IT (occurrence: IT)
  Receive Date: 20161214
  Receipt Date: 20161214
  Transmission Date: 20170207
  Serious: Yes (Other)
  Sender: FDA-Public Use
  Company Number: IT-BAYER-2016-231423

PATIENT
  Age: 91 Year
  Sex: Female

DRUGS (8)
  1. HALCION [Suspect]
     Active Substance: TRIAZOLAM
  2. CARDIOASPIRIN 100 MG [Suspect]
     Active Substance: ASPIRIN
     Dosage: UNK
  3. CLOPIXOL [Suspect]
     Active Substance: ZUCLOPENTHIXOL ACETATE
  4. TAPAZOLE [Suspect]
     Active Substance: METHIMAZOLE
  5. FLECAINIDE [Suspect]
     Active Substance: FLECAINIDE
  6. VASORETIC [Suspect]
     Active Substance: ENALAPRIL MALEATE\HYDROCHLOROTHIAZIDE
  7. ARLEVERT [Suspect]
     Active Substance: CINNARIZINE\DIMENHYDRINATE
  8. SIMVASTATIN. [Suspect]
     Active Substance: SIMVASTATIN

REACTIONS (1)
  - Confusional state [Unknown]

NARRATIVE: CASE EVENT DATE: 20160313
